FAERS Safety Report 8759726 (Version 2)
Quarter: 2013Q4

REPORT INFORMATION
  Report Type: Report from Study
  Country: DE (occurrence: DE)
  Receive Date: 20120829
  Receipt Date: 20131206
  Transmission Date: 20140711
  Serious: Yes (Hospitalization)
  Sender: FDA-Public Use
  Company Number: DE-ROCHE-1105345

PATIENT
  Age: 55 Year
  Sex: Male
  Weight: 88 kg

DRUGS (10)
  1. MYCOPHENOLATE MOFETIL [Suspect]
     Indication: RENAL TRANSPLANT
     Dosage: LAST DOSE PRIOR TO SAE 15-AUG-2012
     Route: 048
     Dates: start: 20120722
  2. BASILIXIMAB [Suspect]
     Indication: RENAL TRANSPLANT
     Dosage: LAST DOSE PRIOR TO SAE 26-JUL-2012
     Route: 042
     Dates: start: 20120722
  3. TACROLIMUS [Suspect]
     Indication: RENAL TRANSPLANT
     Dosage: LAST DOSE PRIOR TO SAE 15-AUG-2012
     Route: 048
     Dates: start: 20120722
  4. PREDNISOLONE [Suspect]
     Indication: RENAL TRANSPLANT
     Dosage: LAST DOSE PRIOR TO SAE 15-AUG-2012
     Route: 048
     Dates: start: 20120722
  5. PANTOL [Concomitant]
     Route: 065
  6. COLECALCIFEROL [Concomitant]
     Route: 065
  7. MOVICOL [Concomitant]
     Dosage: 1 SACHET
     Route: 065
  8. SPIRIVA [Concomitant]
     Dosage: 1 PUFF
     Route: 065
  9. ACTRAPID [Concomitant]
  10. VALCYTE [Concomitant]
     Route: 065

REACTIONS (1)
  - Transplant failure [Recovered/Resolved]
